FAERS Safety Report 4876183-6 (Version None)
Quarter: 2006Q1

REPORT INFORMATION
  Report Type: 
  Country: None (occurrence: None)
  Receive Date: 20060110
  Receipt Date: 20060103
  Transmission Date: 20060701
  Serious: Yes (Hospitalization)
  Sender: FDA-Public Use
  Company Number: US-JNJFOC-20060100895

PATIENT
  Sex: Male
  Weight: 94.8 kg

DRUGS (3)
  1. DURAGESIC-100 [Suspect]
     Route: 062
     Dates: start: 20000101
  2. PERCOCET [Concomitant]
     Route: 048
  3. PERCOCET [Concomitant]
     Indication: PAIN
     Route: 048

REACTIONS (3)
  - ARTHRALGIA [None]
  - JAW OPERATION [None]
  - PNEUMONIA [None]
